FAERS Safety Report 4633644-2 (Version None)
Quarter: 2005Q2

REPORT INFORMATION
  Report Type: 
  Country: None (occurrence: None)
  Receive Date: 20050325
  Receipt Date: 20050104
  Transmission Date: 20051028
  Serious: No
  Sender: FDA-Public Use
  Company Number: USA050187415

PATIENT
  Age: 80 Year
  Sex: Female

DRUGS (1)
  1. FORTEO [Suspect]
     Indication: OSTEOPOROSIS
     Dates: start: 20040801

REACTIONS (4)
  - BRONCHITIS [None]
  - INJECTION SITE ERYTHEMA [None]
  - NAUSEA [None]
  - ORAL CANDIDIASIS [None]
